FAERS Safety Report 4847000-5 (Version None)
Quarter: 2005Q4

REPORT INFORMATION
  Report Type: 
  Country: None (occurrence: None)
  Receive Date: 20051201
  Receipt Date: 20051122
  Transmission Date: 20060501
  Serious: Yes (Other)
  Sender: FDA-Public Use
  Company Number: 2005158287

PATIENT
  Age: 19 Year
  Sex: Male
  Weight: 77.1115 kg

DRUGS (1)
  1. FRESHBURST LISTERINE (METHOL, METHYL SALICYLATE, EUCALYPTOL, THYMOL) [Suspect]
     Indication: INTENTIONAL OVERDOSE
     Dosage: 4 SHOT GLASSES ONCE, ORAL
     Route: 048
     Dates: start: 20051121, end: 20051121

REACTIONS (2)
  - INTENTIONAL DRUG MISUSE [None]
  - NONSPECIFIC REACTION [None]
